FAERS Safety Report 16859835 (Version 1)
Quarter: 2019Q3

REPORT INFORMATION
  Report Type: Spontaneous
  Country: BD (occurrence: BD)
  Receive Date: 20190927
  Receipt Date: 20190927
  Transmission Date: 20191005
  Serious: Yes (Other)
  Sender: FDA-Public Use
  Company Number: BD-ROCHE-2411538

PATIENT
  Sex: Male

DRUGS (2)
  1. DELTASON [Concomitant]
     Active Substance: PREDNISONE
     Route: 048
  2. CELLCEPT [Suspect]
     Active Substance: MYCOPHENOLATE MOFETIL\MYCOPHENOLATE MOFETIL HYDROCHLORIDE
     Indication: LUPUS NEPHRITIS
     Dosage: 1+0+1
     Route: 048
     Dates: start: 20190901, end: 20190914

REACTIONS (2)
  - Condition aggravated [Unknown]
  - Oedema [Not Recovered/Not Resolved]
